FAERS Safety Report 5730227-8 (Version None)
Quarter: 2008Q2

REPORT INFORMATION
  Report Type: 
  Country: None (occurrence: None)
  Receive Date: 20080505
  Receipt Date: 20080505
  Transmission Date: 20081010
  Serious: No
  Sender: FDA-Public Use
  Company Number: None

PATIENT
  Sex: Female
  Weight: 86 kg

DRUGS (1)
  1. LUPRON DEPOT-3 [Suspect]
     Dosage: 11.25 MG IM
     Route: 030
     Dates: start: 20000502

REACTIONS (2)
  - NONSPECIFIC REACTION [None]
  - RASH MACULO-PAPULAR [None]
